FAERS Safety Report 8914248 (Version 2)
Quarter: 2013Q1

REPORT INFORMATION
  Report Type: Spontaneous
  Country: IT (occurrence: IT)
  Receive Date: 20121119
  Receipt Date: 20130314
  Transmission Date: 20140127
  Serious: Yes (Hospitalization, Other)
  Sender: FDA-Public Use
  Company Number: IT-AMGEN-ITASP2012072665

PATIENT
  Age: 84 Year
  Sex: Female

DRUGS (4)
  1. PROLIA [Suspect]
     Indication: OSTEOPOROSIS
     Dosage: 60 MG, QMO
     Route: 058
     Dates: start: 20111201
  2. POTASSIUM CANRENOATE [Concomitant]
     Dosage: 50 MG, UNK
     Route: 048
     Dates: start: 20070101
  3. DIBASE [Concomitant]
     Dosage: 1000 IU, UNK
     Dates: start: 20080101
  4. COUMADIN                           /00014802/ [Concomitant]
     Dosage: 5 MG, UNK
     Route: 048
     Dates: start: 20100101

REACTIONS (2)
  - Breast cancer [Recovered/Resolved]
  - Incorrect drug administration duration [Unknown]
